FAERS Safety Report 5068489-5 (Version None)
Quarter: 2006Q3

REPORT INFORMATION
  Report Type: 
  Country: None (occurrence: None)
  Receive Date: 20060802
  Receipt Date: 20051019
  Transmission Date: 20061208
  Serious: No
  Sender: FDA-Public Use
  Company Number: US-BRISTOL-MYERS SQUIBB COMPANY-13150446

PATIENT
  Age: 77 Year
  Sex: Male
  Weight: 81 kg

DRUGS (10)
  1. COUMADIN [Suspect]
     Dosage: 7.5 MG DAILY MON, THURS, SAT; 5 MG DAILY OTHER DAYS
     Dates: start: 19990601
  2. PROSCAR [Concomitant]
  3. NIASPAN [Concomitant]
  4. BENICAR [Concomitant]
  5. CRESTOR [Concomitant]
  6. ZETIA [Concomitant]
  7. NEXIUM [Concomitant]
  8. AGGRENOX [Concomitant]
  9. TOPROL-XL [Concomitant]
  10. LEXAPRO [Concomitant]

REACTIONS (1)
  - INTERNATIONAL NORMALISED RATIO FLUCTUATION [None]
